FAERS Safety Report 13738495 (Version 1)
Quarter: 2017Q3

REPORT INFORMATION
  Report Type: Report from Study
  Country: US (occurrence: US)
  Receive Date: 20170710
  Receipt Date: 20170710
  Transmission Date: 20171127
  Serious: Yes (Hospitalization, Other)
  Sender: FDA-Public Use
  Company Number: US-SAOL THERAPEUTICS-2017SAO00210

PATIENT
  Age: 63 Year
  Sex: Male

DRUGS (12)
  1. BUPIVACAINE. [Suspect]
     Active Substance: BUPIVACAINE
     Dosage: 24.739 MG, \DAY
     Route: 037
     Dates: start: 20140213, end: 20140214
  2. BUPIVACAINE. [Suspect]
     Active Substance: BUPIVACAINE
     Dosage: 21.357 MG, \DAY
     Route: 037
     Dates: start: 20140213, end: 10140214
  3. COMPOUNDED BACLOFEN [Suspect]
     Active Substance: BACLOFEN
     Dosage: 92.89 ?G, \DAY
     Route: 037
     Dates: start: 20140214
  4. DILAUDID [Suspect]
     Active Substance: HYDROMORPHONE HYDROCHLORIDE
     Dosage: 1.504 MG, \DAY
     Route: 037
     Dates: start: 20140213, end: 20140214
  5. CLONIDINE. [Suspect]
     Active Substance: CLONIDINE
     Dosage: 150.02 ?G, \DAY
     Route: 037
     Dates: start: 20140214
  6. BUPIVACAINE. [Suspect]
     Active Substance: BUPIVACAINE
     Dosage: 18.577 MG, \DAY
     Route: 037
     Dates: start: 20140214
  7. CLONIDINE. [Suspect]
     Active Substance: CLONIDINE
     Dosage: 185.77 ?G, \DAY
     Route: 037
     Dates: start: 20140214
  8. BUPIVACAINE. [Suspect]
     Active Substance: BUPIVACAINE
     Dosage: 15.002 MG, \DAY
     Route: 037
     Dates: start: 20140214
  9. COMPOUNDED BACLOFEN [Suspect]
     Active Substance: BACLOFEN
     Dosage: 75.01 ?G, \DAY
     Route: 037
     Dates: start: 20140214
  10. DILAUDID [Suspect]
     Active Substance: HYDROMORPHONE HYDROCHLORIDE
     Dosage: 2.5003 MG, \DAY
     Route: 037
     Dates: start: 20140214
  11. DILAUDID [Suspect]
     Active Substance: HYDROMORPHONE HYDROCHLORIDE
     Dosage: 3.096 MG, \DAY
     Dates: start: 20140214
  12. DILAUDID [Suspect]
     Active Substance: HYDROMORPHONE HYDROCHLORIDE
     Dosage: 1.742 MG, \DAY
     Route: 037
     Dates: start: 20140213, end: 20140214

REACTIONS (4)
  - Dizziness [Recovered/Resolved]
  - Sedation [Recovered/Resolved]
  - Overdose [Recovered/Resolved]
  - Pneumonia [Recovered/Resolved]

NARRATIVE: CASE EVENT DATE: 20140214
